FAERS Safety Report 16407246 (Version 2)
Quarter: 2019Q3

REPORT INFORMATION
  Report Type: Spontaneous
  Country: US (occurrence: US)
  Receive Date: 20190608
  Receipt Date: 20190701
  Transmission Date: 20191004
  Serious: Yes (Hospitalization, Other)
  Sender: FDA-Public Use
  Company Number: US-009507513-1905USA013257

PATIENT
  Sex: Male

DRUGS (2)
  1. PROSCAR [Suspect]
     Active Substance: FINASTERIDE
     Indication: PROSTATIC DISORDER
     Dosage: 5 MILLIGRAM, ONCE A DAY
     Route: 048
  2. NEXIUM [Suspect]
     Active Substance: ESOMEPRAZOLE MAGNESIUM
     Indication: DYSPEPSIA
     Dosage: ONE PILL A DAY
     Route: 048

REACTIONS (8)
  - Choking [Unknown]
  - Gastrectomy [Unknown]
  - Oesophageal disorder [Unknown]
  - Atrial fibrillation [Unknown]
  - Haematemesis [Unknown]
  - Hiatus hernia [Unknown]
  - Weight decreased [Unknown]
  - Surgery [Unknown]
